FAERS Safety Report 10176276 (Version 2)
Quarter: 2014Q2

REPORT INFORMATION
  Report Type: Spontaneous
  Country: US (occurrence: US)
  Receive Date: 20140516
  Receipt Date: 20140612
  Transmission Date: 20141212
  Serious: No
  Sender: FDA-Public Use
  Company Number: US-PFIZER INC-2014133140

PATIENT
  Age: 85 Year
  Sex: Female
  Weight: 62.6 kg

DRUGS (5)
  1. AMLODIPINE BESILATE [Suspect]
     Indication: HYPERTENSION
     Dosage: 5 MG, 2X/DAY
     Route: 048
     Dates: start: 20140224, end: 2014
  2. LISINOPRIL [Concomitant]
     Indication: HYPERTENSION
     Dosage: 20 MG, 2X/DAY
     Route: 048
  3. TOPROL XL [Concomitant]
     Indication: HYPERTENSION
     Dosage: 25 MG, 1X/DAY
     Route: 048
  4. NORVASC [Concomitant]
     Indication: HYPERTENSION
     Dosage: 5 MG, 2X/DAY
     Route: 048
     Dates: start: 2004
  5. NORVASC [Concomitant]
     Dosage: 5 MG, 2X/DAY
     Dates: start: 2014

REACTIONS (10)
  - Pain in extremity [Unknown]
  - Heart rate increased [Unknown]
  - Arthropathy [Unknown]
  - Back disorder [Unknown]
  - Flatulence [Unknown]
  - Abdominal distension [Unknown]
  - Neuropathy peripheral [Unknown]
  - Blood glucose abnormal [Unknown]
  - Body height decreased [Unknown]
  - Nervousness [Unknown]
